FAERS Safety Report 7661426-6 (Version None)
Quarter: 2011Q3

REPORT INFORMATION
  Report Type: 
  Country: None (occurrence: None)
  Receive Date: 20110805
  Receipt Date: 20101118
  Transmission Date: 20111222
  Serious: No
  Sender: FDA-Public Use
  Company Number: US-ABBOTT-10P-163-0679022-00

PATIENT
  Sex: Female
  Weight: 76.272 kg

DRUGS (11)
  1. NIASPAN [Suspect]
     Indication: HIGH DENSITY LIPOPROTEIN DECREASED
  2. SINGULAIR [Concomitant]
     Indication: HYPERSENSITIVITY
  3. PNEUMONIA SHOT [Suspect]
     Indication: PROPHYLAXIS
  4. DIURETIC [Concomitant]
     Indication: HYPERTENSION
  5. SIMVASTATIN [Concomitant]
     Indication: BLOOD CHOLESTEROL INCREASED
     Dates: start: 20100901, end: 20101012
  6. FLU SHOT [Suspect]
     Indication: ANTIVIRAL PROPHYLAXIS
     Dates: start: 20101012, end: 20101012
  7. ASPIRIN [Concomitant]
     Indication: PROPHYLAXIS
     Dosage: 30 MINUTES BEFORE NIASPAN
  8. NIASPAN [Suspect]
     Indication: BLOOD CHOLESTEROL INCREASED
     Route: 048
     Dates: start: 20100901
  9. SIMCOR [Suspect]
     Indication: HIGH DENSITY LIPOPROTEIN DECREASED
  10. SIMCOR [Suspect]
     Indication: BLOOD CHOLESTEROL INCREASED
     Dosage: 500/40
     Route: 048
     Dates: start: 20101013
  11. PNEUMONIA SHOT [Suspect]
     Indication: PNEUMONIA
     Dates: start: 20101012, end: 20101012

REACTIONS (6)
  - PRURITUS [None]
  - INSOMNIA [None]
  - FEELING HOT [None]
  - ERYTHEMA [None]
  - SKIN BURNING SENSATION [None]
  - FLUSHING [None]
